FAERS Safety Report 9459353 (Version 2)
Quarter: 2013Q4

REPORT INFORMATION
  Report Type: Report from Study
  Country: US (occurrence: US)
  Receive Date: 20130815
  Receipt Date: 20131022
  Transmission Date: 20140711
  Serious: Yes (Other)
  Sender: FDA-Public Use
  Company Number: US-BIOGENIDEC-2013BI071969

PATIENT
  Age: 44 Year
  Sex: Female
  Weight: 70 kg

DRUGS (8)
  1. TYSABRI [Suspect]
     Indication: CROHN^S DISEASE
     Route: 042
     Dates: start: 20130221
  2. OXYCODONE/ACETAMINOPHEN [Concomitant]
     Indication: BACK PAIN
     Route: 048
  3. OXYCODONE/ACETAMINOPHEN [Concomitant]
     Indication: BACK PAIN
     Route: 048
  4. AMBIEN [Concomitant]
     Indication: INSOMNIA
     Route: 048
  5. CITALOPRAM [Concomitant]
     Indication: DEPRESSION
     Route: 048
  6. FLEXERIL [Concomitant]
     Indication: MUSCLE SPASMS
     Route: 048
  7. TYLENOL [Concomitant]
     Indication: HEADACHE
     Route: 048
  8. MULTIVITAMIN [Concomitant]
     Indication: SUPPLEMENTATION THERAPY
     Route: 048

REACTIONS (2)
  - Squamous cell carcinoma of skin [Recovered/Resolved]
  - Basal cell carcinoma [Recovered/Resolved]
